FAERS Safety Report 13046304 (Version 1)
Quarter: 2016Q4

REPORT INFORMATION
  Report Type: Spontaneous
  Country: NO (occurrence: NO)
  Receive Date: 20161220
  Receipt Date: 20161220
  Transmission Date: 20170207
  Serious: Yes (Other)
  Sender: FDA-Public Use
  Company Number: NO-GLAXOSMITHKLINE-NO2016184616

PATIENT
  Age: 75 Year
  Sex: Female

DRUGS (6)
  1. COD LIVER OIL [Concomitant]
     Active Substance: COD LIVER OIL
     Dosage: UNK
     Route: 065
  2. CETIRIZINE [Concomitant]
     Active Substance: CETIRIZINE HYDROCHLORIDE
     Indication: HYPERSENSITIVITY
     Dosage: USE AS NEEDED WHEN RELEVANT
     Route: 065
  3. CALCIUM SUPPLEMENT [Concomitant]
     Active Substance: CALCIUM
     Dosage: TAKEN WHEN REMEMEBERED
     Route: 065
  4. RELVAR ELLIPTA [Suspect]
     Active Substance: FLUTICASONE FUROATE\VILANTEROL TRIFENATATE
     Indication: ASTHMA
     Dosage: 1 DF = 92/22 MCG
     Route: 055
     Dates: start: 20160601, end: 20160813
  5. METOPROLOL SANDOZ [Concomitant]
     Active Substance: METOPROLOL
     Dosage: USED FOR AROUND 10 YEARS
     Route: 065
  6. LEVAXIN [Concomitant]
     Active Substance: LEVOTHYROXINE SODIUM
     Indication: HYPOTHYROIDISM
     Dosage: 450 ?G, UNK
     Route: 065

REACTIONS (3)
  - Depression suicidal [Recovered/Resolved]
  - Influenza [Recovered/Resolved]
  - Thinking abnormal [Recovered/Resolved]

NARRATIVE: CASE EVENT DATE: 20160808
